FAERS Safety Report 6884011-2 (Version None)
Quarter: 2010Q3

REPORT INFORMATION
  Report Type: 
  Country: None (occurrence: None)
  Receive Date: 20100729
  Receipt Date: 20100715
  Transmission Date: 20110219
  Serious: Yes (Hospitalization, Other)
  Sender: FDA-Public Use
  Company Number: PHHY2010FR45711

PATIENT
  Sex: Male
  Weight: 87 kg

DRUGS (5)
  1. AFINITOR [Suspect]
     Indication: RENAL CANCER METASTATIC
     Dosage: 10 MG, DAILY
     Dates: start: 20100517, end: 20100708
  2. LYRICA [Concomitant]
     Indication: PAIN
     Dosage: 75 MG, TWICE PER DAY
     Route: 048
  3. SKENAN [Concomitant]
     Indication: PAIN
     Dosage: 40 MG, TWICE PER DAY
  4. LYTOS [Concomitant]
     Indication: METASTASIS
     Dosage: 520 MG, TWICE PER DAY
     Route: 048
  5. TEVETEN [Concomitant]
     Indication: HYPERTENSION
     Dosage: 300 MG, UNK
     Route: 048

REACTIONS (17)
  - BLOOD CREATININE INCREASED [None]
  - C-REACTIVE PROTEIN INCREASED [None]
  - COUGH [None]
  - CYANOSIS [None]
  - DYSPNOEA EXERTIONAL [None]
  - FATIGUE [None]
  - HYPOXIA [None]
  - INTERSTITIAL LUNG DISEASE [None]
  - LUNG DISORDER [None]
  - LUNG INFECTION [None]
  - MALAISE [None]
  - PURULENT DISCHARGE [None]
  - PYREXIA [None]
  - RALES [None]
  - RENAL FAILURE [None]
  - SUPERINFECTION [None]
  - WHEEZING [None]
